FAERS Safety Report 24564477 (Version 1)
Quarter: 2024Q4

REPORT INFORMATION
  Report Type: Report from Study
  Country: US (occurrence: US)
  Receive Date: 20241030
  Receipt Date: 20241030
  Transmission Date: 20250114
  Serious: Yes (Hospitalization, Other)
  Sender: BAYER HEALTHCARE LLC
  Company Number: US-BAYER-2024A113202

PATIENT
  Age: 73 Year
  Sex: Male
  Weight: 70.658 kg

DRUGS (15)
  1. ADEMPAS [Suspect]
     Active Substance: RIOCIGUAT
     Indication: Pulmonary arterial hypertension
     Dosage: UNK
     Dates: start: 20240618
  2. ADEMPAS [Suspect]
     Active Substance: RIOCIGUAT
     Indication: Pulmonary arterial hypertension
     Dosage: 1.5 MG, TID
     Route: 048
  3. ASPIRIN [Suspect]
     Active Substance: ASPIRIN
  4. ALBUTEROL\IPRATROPIUM [Concomitant]
     Active Substance: ALBUTEROL\IPRATROPIUM
  5. MELATONIN [Concomitant]
     Active Substance: MELATONIN
  6. VITAMINS [Concomitant]
     Active Substance: VITAMINS
  7. FLOMAX [Concomitant]
     Active Substance: TAMSULOSIN HYDROCHLORIDE
  8. ALBUTEROL SULFATE [Concomitant]
     Active Substance: ALBUTEROL SULFATE
  9. TRELEGY ELLIPTA [Concomitant]
     Active Substance: FLUTICASONE FUROATE\UMECLIDINIUM BROMIDE\VILANTEROL TRIFENATATE
  10. ELIQUIS [Concomitant]
     Active Substance: APIXABAN
  11. LEXAPRO [Concomitant]
     Active Substance: ESCITALOPRAM OXALATE
  12. MUCINEX [Concomitant]
     Active Substance: GUAIFENESIN
  13. DALIRESP [Concomitant]
     Active Substance: ROFLUMILAST
  14. BACLOFEN [Concomitant]
     Active Substance: BACLOFEN
  15. ALPRAZOLAM [Concomitant]
     Active Substance: ALPRAZOLAM

REACTIONS (7)
  - Haematuria [None]
  - Blood urine present [None]
  - Hospitalisation [None]
  - Hospitalisation [None]
  - Hospitalisation [None]
  - Dysphonia [None]
  - Dyspnoea exertional [None]

NARRATIVE: CASE EVENT DATE: 20240101
